FAERS Safety Report 22133112 (Version 8)
Quarter: 2023Q2

REPORT INFORMATION
  Report Type: Spontaneous
  Country: PT (occurrence: PT)
  Receive Date: 20230324
  Receipt Date: 20230613
  Transmission Date: 20230721
  Serious: Yes (Life-Threatening, Hospitalization, Other)
  Sender: FDA-Public Use
  Company Number: PT-AUROBINDO-AUR-APL-2023-012775

PATIENT
  Age: 50 Year
  Sex: Female
  Weight: 60 kg

DRUGS (13)
  1. ATORVASTATIN [Suspect]
     Active Substance: ATORVASTATIN
     Indication: Toxicity to various agents
     Dosage: 400 MILLIGRAM
     Route: 065
  2. ATORVASTATIN [Suspect]
     Active Substance: ATORVASTATIN
     Dosage: 400 MILLIGRAM, 1 TOTAL
     Route: 048
  3. AMLODIPINE [Suspect]
     Active Substance: AMLODIPINE BESYLATE
     Indication: Toxicity to various agents
     Dosage: 140 MILLIGRAM
     Route: 065
  4. AMLODIPINE [Suspect]
     Active Substance: AMLODIPINE BESYLATE
     Dosage: 140 MILLIGRAM, 1 TOTAL
     Route: 065
  5. SERTRALINE [Suspect]
     Active Substance: SERTRALINE HYDROCHLORIDE
     Indication: Toxicity to various agents
     Dosage: 1 GRAM
     Route: 065
  6. SERTRALINE [Suspect]
     Active Substance: SERTRALINE HYDROCHLORIDE
     Dosage: 1 GRAM, 1 TOTAL
     Route: 048
  7. TRAZODONE [Suspect]
     Active Substance: TRAZODONE HYDROCHLORIDE
     Indication: Toxicity to various agents
     Dosage: 2 GRAM
     Route: 065
  8. TRAZODONE [Suspect]
     Active Substance: TRAZODONE HYDROCHLORIDE
     Dosage: 2 GRAM, 1 TOTAL
     Route: 048
  9. ETHYL LOFLAZEPATE [Suspect]
     Active Substance: ETHYL LOFLAZEPATE
     Indication: Toxicity to various agents
     Dosage: 56 MILLIGRAM
     Route: 065
  10. ETHYL LOFLAZEPATE [Suspect]
     Active Substance: ETHYL LOFLAZEPATE
     Dosage: 56 MILLIGRAM,1 TOTAL
     Route: 048
  11. ETHYL LOFLAZEPATE [Suspect]
     Active Substance: ETHYL LOFLAZEPATE
     Dosage: 2 MILLIGRAM, AS NECESSARY
     Route: 048
  12. IMIDAPRIL [Suspect]
     Active Substance: IMIDAPRIL
     Indication: Toxicity to various agents
     Dosage: 140 MILLIGRAM
     Route: 065
  13. IMIDAPRIL [Suspect]
     Active Substance: IMIDAPRIL
     Dosage: 140 MILLIGRAM, 1 TOTAL
     Route: 048

REACTIONS (8)
  - Altered state of consciousness [Recovered/Resolved]
  - Hypokalaemia [Recovered/Resolved]
  - Hypoglycaemia [Recovered/Resolved]
  - Poisoning [Recovered/Resolved]
  - Toxicity to various agents [Recovered/Resolved]
  - Intentional overdose [Recovered/Resolved]
  - Hypotension [Recovered/Resolved]
  - Cardiogenic shock [Recovered/Resolved]
